FAERS Safety Report 9191556 (Version 2)
Quarter: 2013Q2

REPORT INFORMATION
  Report Type: Report from Study
  Country: US (occurrence: US)
  Receive Date: 20130326
  Receipt Date: 20130411
  Transmission Date: 20140414
  Serious: Yes (Hospitalization)
  Sender: FDA-Public Use
  Company Number: US-ACTELION-A-US2013-80789

PATIENT
  Age: 55 Year
  Sex: Male

DRUGS (2)
  1. TRACLEER [Suspect]
     Indication: PULMONARY ARTERIAL HYPERTENSION
     Dosage: UNK
     Route: 048
     Dates: start: 201211
  2. OXYGEN [Concomitant]

REACTIONS (6)
  - Inguinal hernia [Recovering/Resolving]
  - Inguinal hernia repair [Recovering/Resolving]
  - Epistaxis [Recovered/Resolved]
  - Constipation [Unknown]
  - Vomiting [Unknown]
  - Diarrhoea [Unknown]
